FAERS Safety Report 15235090 (Version 3)
Quarter: 2018Q3

REPORT INFORMATION
  Report Type: Other
  Country: ES (occurrence: ES)
  Receive Date: 20180803
  Receipt Date: 20180824
  Transmission Date: 20181010
  Serious: Yes (Hospitalization, Other)
  Sender: FDA-Public Use
  Company Number: ES-MACLEODS PHARMACEUTICALS US LTD-MAC2018015186

PATIENT

DRUGS (6)
  1. ENOXAPARIN [Interacting]
     Active Substance: ENOXAPARIN
     Indication: ANTICOAGULANT THERAPY
     Dosage: 1 MILLIGRAM/KILOGRAM, BID
     Route: 058
  2. ASPIRIN. [Interacting]
     Active Substance: ASPIRIN
     Dosage: UNK
     Route: 065
  3. CLOPIDOGREL [Suspect]
     Active Substance: CLOPIDOGREL BISULFATE
     Indication: ANTIPLATELET THERAPY
     Dosage: 1 MILLIGRAM/KILOGRAM, BID
     Route: 065
  4. ASPIRIN. [Interacting]
     Active Substance: ASPIRIN
     Indication: ANTIPLATELET THERAPY
     Dosage: 1 MILLIGRAM/KILOGRAM, BID
     Route: 065
  5. ABCIXIMAB [Suspect]
     Active Substance: ABCIXIMAB
     Indication: CATHETER PLACEMENT
     Dosage: UNK
     Route: 040
  6. CLOPIDOGREL [Interacting]
     Active Substance: CLOPIDOGREL BISULFATE
     Dosage: UNK
     Route: 065

REACTIONS (8)
  - Melaena [Unknown]
  - Immune thrombocytopenic purpura [Recovered/Resolved]
  - Petechiae [Recovered/Resolved]
  - Anaemia [Recovering/Resolving]
  - Ecchymosis [Recovered/Resolved]
  - Labelled drug-drug interaction medication error [Unknown]
  - Hypotension [Unknown]
  - Thrombocytopenia [Recovered/Resolved]
